FAERS Safety Report 25068646 (Version 2)
Quarter: 2025Q1

REPORT INFORMATION
  Report Type: Spontaneous
  Country: IT (occurrence: IT)
  Receive Date: 20250312
  Receipt Date: 20250319
  Transmission Date: 20250409
  Serious: Yes (Other)
  Sender: PFIZER
  Company Number: None

PATIENT
  Age: 6 Year
  Sex: Female
  Weight: 18 kg

DRUGS (14)
  1. DEXAMETHASONE SODIUM PHOSPHATE [Suspect]
     Active Substance: DEXAMETHASONE SODIUM PHOSPHATE
     Indication: Febrile infection-related epilepsy syndrome
     Dosage: 3 MG, 2X/DAY
  2. FLUCONAZOLE [Suspect]
     Active Substance: FLUCONAZOLE
     Indication: Antifungal prophylaxis
     Route: 050
  3. BISOPROLOL FUMARATE [Suspect]
     Active Substance: BISOPROLOL FUMARATE
     Indication: Arrhythmia
     Dosage: 2.5 MG, 3X/DAY
     Route: 050
  4. TOCILIZUMAB [Suspect]
     Active Substance: TOCILIZUMAB
     Indication: Febrile infection-related epilepsy syndrome
  5. CLONAZEPAM [Concomitant]
     Active Substance: CLONAZEPAM
  6. ENOXAPARIN [Concomitant]
     Active Substance: ENOXAPARIN
  7. CANNABIDIOL [Concomitant]
     Active Substance: CANNABIDIOL
  8. FENFLURAMINE [Concomitant]
     Active Substance: FENFLURAMINE
  9. LACOSAMIDE [Concomitant]
     Active Substance: LACOSAMIDE
  10. OMEPRAZOLE [Concomitant]
     Active Substance: OMEPRAZOLE
  11. PHENOBARBITAL [Concomitant]
     Active Substance: PHENOBARBITAL
  12. RITUXIMAB [Concomitant]
     Active Substance: RITUXIMAB
  13. SIALANAR [Concomitant]
  14. THIOPENTAL SODIUM [Concomitant]
     Active Substance: THIOPENTAL SODIUM

REACTIONS (2)
  - Hypertriglyceridaemia [Unknown]
  - Off label use [Unknown]

NARRATIVE: CASE EVENT DATE: 20250123
